FAERS Safety Report 8328651-2 (Version None)
Quarter: 2012Q2

REPORT INFORMATION
  Report Type: 
  Country: None (occurrence: None)
  Receive Date: 20120430
  Receipt Date: 20120417
  Transmission Date: 20120825
  Serious: Yes (Other)
  Sender: FDA-Public Use
  Company Number: 2012MA005100

PATIENT
  Age: 77 Year
  Sex: Female

DRUGS (6)
  1. CANDESARTAN CILEXETIL [Concomitant]
  2. TIOTROPIUM BROMIDE [Concomitant]
  3. ZOLPIDEM [Concomitant]
  4. CALCIUM CARBONATE [Concomitant]
  5. CITALOPRAM HYDROBROMIDE [Suspect]
     Indication: DEPRESSION
     Dosage: 10 MG;PO
     Route: 048
     Dates: start: 20110929, end: 20111012
  6. MOVIPREP [Concomitant]

REACTIONS (1)
  - GRAND MAL CONVULSION [None]
